FAERS Safety Report 4900068-X (Version None)
Quarter: 2006Q1

REPORT INFORMATION
  Report Type: 
  Country: None (occurrence: None)
  Receive Date: 20060131
  Receipt Date: 20060113
  Transmission Date: 20060701
  Serious: Yes (Hospitalization)
  Sender: FDA-Public Use
  Company Number: WAES 0511USA01385

PATIENT
  Age: 83 Year
  Sex: Female
  Weight: 28.123 kg

DRUGS (12)
  1. PRINIVIL [Suspect]
     Indication: CARDIAC FAILURE CONGESTIVE
     Dosage: 10 MG/DAILY/PO
     Route: 048
     Dates: start: 20050616, end: 20051001
  2. DURAGESIC-100 [Suspect]
     Indication: PAIN
     Dosage: 25 MICROGM/QOD/TOP
     Route: 061
     Dates: start: 20050508, end: 20050930
  3. INJ BLINDED THERAPY [Suspect]
     Indication: CARDIAC FAILURE
     Dosage: SEE IMAGE, IV
     Route: 042
     Dates: start: 20050926
  4. ASPIRIN [Concomitant]
  5. BUMEX [Concomitant]
  6. COLACE [Concomitant]
  7. NEURONTIN [Concomitant]
  8. PROPACET 100 [Concomitant]
  9. SYNTHROID [Concomitant]
  10. AMIODARONE [Concomitant]
  11. DIGOXIN [Concomitant]
  12. POTASSIUM CHLORIDE [Concomitant]

REACTIONS (14)
  - BRAIN NATRIURETIC PEPTIDE INCREASED [None]
  - CARDIAC FAILURE CONGESTIVE [None]
  - CARDIOACTIVE DRUG LEVEL ABOVE THERAPEUTIC [None]
  - CAROTID ARTERY STENOSIS [None]
  - CREPITATIONS [None]
  - DRUG ADMINISTRATION ERROR [None]
  - HYPOTENSION [None]
  - LACUNAR INFARCTION [None]
  - MENTAL STATUS CHANGES [None]
  - RED BLOOD CELL SEDIMENTATION RATE INCREASED [None]
  - SHOULDER PAIN [None]
  - TRANSIENT ISCHAEMIC ATTACK [None]
  - URINARY TRACT INFECTION STAPHYLOCOCCAL [None]
  - VENTRICULAR DYSFUNCTION [None]
